FAERS Safety Report 15867902 (Version 1)
Quarter: 2019Q1

REPORT INFORMATION
  Report Type: Spontaneous
  Country: CH (occurrence: CH)
  Receive Date: 20190125
  Receipt Date: 20190125
  Transmission Date: 20190417
  Serious: Yes (Hospitalization)
  Sender: FDA-Public Use
  Company Number: CH-TEVA-2019-CH-1004200

PATIENT
  Sex: Male

DRUGS (11)
  1. PARACETAMOL [Suspect]
     Active Substance: ACETAMINOPHEN
     Dosage: 4 GRAM DAILY;
     Route: 048
     Dates: start: 20181113, end: 20181127
  2. MARCOUMAR [Suspect]
     Active Substance: PHENPROCOUMON
     Route: 065
  3. CRESTOR [Suspect]
     Active Substance: ROSUVASTATIN CALCIUM
     Route: 065
     Dates: end: 20181112
  4. KEFZOL [Suspect]
     Active Substance: CEFAZOLIN SODIUM
     Dosage: 13-NOV-2018 AND 20-NOV-2018, PRE-OPERATIVELY
     Route: 065
  5. NOVALGIN (METAMIZOLE SODIUM) [Concomitant]
     Active Substance: METAMIZOLE SODIUM
     Route: 065
  6. HEPARIN [Suspect]
     Active Substance: HEPARIN SODIUM
     Dosage: PERFUSOR
     Route: 065
     Dates: start: 20181114, end: 20181122
  7. AMLODIPINE [Suspect]
     Active Substance: AMLODIPINE BESYLATE
     Route: 065
  8. VITAMIN D [Concomitant]
     Active Substance: CHOLECALCIFEROL
     Dosage: 2000 IU (INTERNATIONAL UNIT) DAILY; DAILY
     Route: 065
  9. PARACETAMOL [Suspect]
     Active Substance: ACETAMINOPHEN
     Route: 048
     Dates: start: 20181209, end: 20181213
  10. ATORVASTATIN [Suspect]
     Active Substance: ATORVASTATIN
     Route: 065
     Dates: start: 20181112, end: 20181209
  11. VITAMIN B12 [Concomitant]
     Active Substance: CYANOCOBALAMIN
     Route: 065

REACTIONS (1)
  - Hepatitis cholestatic [Not Recovered/Not Resolved]
